FAERS Safety Report 4349756-7 (Version None)
Quarter: 2004Q2

REPORT INFORMATION
  Report Type: 
  Country: None (occurrence: None)
  Receive Date: 20040426
  Receipt Date: 20040226
  Transmission Date: 20050107
  Serious: Yes (Other)
  Sender: FDA-Public Use
  Company Number: KII-2004-0009587

PATIENT
  Age: 77 Year
  Sex: Female

DRUGS (1)
  1. MORPHINE SULFATE [Suspect]
     Indication: DRUG USE FOR UNKNOWN INDICATION
     Dosage: 10 MG, SUBCUTANEOUS
     Route: 058

REACTIONS (6)
  - ASTHENIA [None]
  - DECREASED APPETITE [None]
  - DYSPHAGIA [None]
  - MEDICATION ERROR [None]
  - RESPIRATORY RATE DECREASED [None]
  - WALKING DISABILITY [None]
